FAERS Safety Report 5986849-2 (Version None)
Quarter: 2008Q4

REPORT INFORMATION
  Report Type: 
  Country: None (occurrence: None)
  Receive Date: 20081209
  Receipt Date: 20081114
  Transmission Date: 20090506
  Serious: No
  Sender: FDA-Public Use
  Company Number: US-BAYER-200814423BCC

PATIENT
  Age: 49 Year
  Sex: Female
  Weight: 98 kg

DRUGS (1)
  1. ALEVE [Suspect]
     Indication: HEADACHE

REACTIONS (1)
  - HEADACHE [None]
